FAERS Safety Report 5310764-0 (Version None)
Quarter: 2007Q2

REPORT INFORMATION
  Report Type: 
  Country: None (occurrence: None)
  Receive Date: 20070428
  Receipt Date: 20070417
  Transmission Date: 20071010
  Serious: Yes (Disabling, Other)
  Sender: FDA-Public Use
  Company Number: AU-PFIZER INC-2007026266

PATIENT
  Sex: Male

DRUGS (3)
  1. ZELDOX (CAPSULES) [Suspect]
     Indication: SCHIZOAFFECTIVE DISORDER
     Route: 048
     Dates: start: 20070314, end: 20070404
  2. EFFEXOR XR [Concomitant]
     Indication: SCHIZOAFFECTIVE DISORDER
     Dosage: DAILY DOSE:150MG-TEXT:150MG ORALLY IN THE MORNING
     Route: 048
  3. LITHIUM CARBONATE [Concomitant]
     Indication: SCHIZOAFFECTIVE DISORDER
     Route: 048
     Dates: start: 20000704

REACTIONS (6)
  - ABNORMAL DREAMS [None]
  - AKATHISIA [None]
  - EMOTIONAL DISTRESS [None]
  - PARKINSONISM [None]
  - PSYCHOMOTOR RETARDATION [None]
  - THINKING ABNORMAL [None]
